FAERS Safety Report 18118900 (Version 2)
Quarter: 2020Q4

REPORT INFORMATION
  Report Type: Spontaneous
  Country: US (occurrence: US)
  Receive Date: 20200806
  Receipt Date: 20201203
  Transmission Date: 20210113
  Serious: Yes (Other)
  Sender: FDA-Public Use
  Company Number: US-PFIZER INC-2020296578

PATIENT
  Age: 79 Year
  Sex: Female

DRUGS (3)
  1. PROLIA [Concomitant]
     Active Substance: DENOSUMAB
     Indication: OSTEOPOROSIS
     Dosage: UNK
  2. PROLIA [Concomitant]
     Active Substance: DENOSUMAB
     Indication: BONE CANCER
  3. PREMARIN [Suspect]
     Active Substance: ESTROGENS, CONJUGATED
     Dosage: UNK (INSERT 0.5 APPLICATOR(S)FUL TWICE A WEEK BY VAGINAL ROUTE AT BEDTIME)
     Route: 067

REACTIONS (3)
  - Intentional product use issue [Unknown]
  - Osteoporosis [Unknown]
  - Bone cancer [Unknown]
